FAERS Safety Report 24947624 (Version 2)
Quarter: 2025Q1

REPORT INFORMATION
  Report Type: Other
  Country: CN (occurrence: CN)
  Receive Date: 20250210
  Receipt Date: 20250306
  Transmission Date: 20250409
  Serious: Yes (Hospitalization, Other)
  Sender: SPECTRA MEDICAL DEVICES, LLC
  Company Number: CN-Spectra Medical Devices, LLC-2170850

PATIENT
  Age: 72 Year
  Sex: Male

DRUGS (2)
  1. LIDOCAINE HYDROCHLORIDE [Suspect]
     Active Substance: LIDOCAINE HYDROCHLORIDE
     Indication: Local anaesthesia
     Dates: start: 20240505, end: 20240505
  2. TETANUS ANTITOXIN [Interacting]
     Active Substance: TETANUS ANTITOXIN

REACTIONS (2)
  - Anaphylactic shock [Recovered/Resolved]
  - Drug interaction [Unknown]

NARRATIVE: CASE EVENT DATE: 20240505
